FAERS Safety Report 12526228 (Version 1)
Quarter: 2016Q3

REPORT INFORMATION
  Report Type: Spontaneous
  Country: US (occurrence: US)
  Receive Date: 20160705
  Receipt Date: 20160705
  Transmission Date: 20161109
  Serious: No
  Sender: FDA-Public Use
  Company Number: US-PFIZER INC-2016310815

PATIENT
  Age: 66 Year
  Sex: Male
  Weight: 97.6 kg

DRUGS (2)
  1. NITROGLYCERIN. [Suspect]
     Active Substance: NITROGLYCERIN
     Dosage: UNK UNK, 4X/DAY (0.5 INCH EVERY 6 HOURS)
  2. NITROGLYCERIN. [Suspect]
     Active Substance: NITROGLYCERIN
     Indication: CHEST PAIN
     Dosage: 1 DF, UNK

REACTIONS (1)
  - Drug ineffective [Unknown]
